FAERS Safety Report 9259895 (Version 3)
Quarter: 2013Q3

REPORT INFORMATION
  Report Type: Spontaneous
  Country: US (occurrence: US)
  Receive Date: 20130429
  Receipt Date: 20130814
  Transmission Date: 20140515
  Serious: No
  Sender: FDA-Public Use
  Company Number: US-009507513-1304USA016306

PATIENT
  Age: 21 Year
  Sex: Female
  Weight: 46.62 kg

DRUGS (1)
  1. NEXPLANON [Suspect]
     Indication: CONTRACEPTION
     Dosage: ONE ROD
     Route: 059
     Dates: start: 20130424

REACTIONS (8)
  - Erythema [Unknown]
  - Implant site pain [Not Recovered/Not Resolved]
  - Discomfort [Not Recovered/Not Resolved]
  - Device dislocation [Not Recovered/Not Resolved]
  - Pruritus [Unknown]
  - Oedema peripheral [Unknown]
  - Vomiting [Not Recovered/Not Resolved]
  - Device difficult to use [Not Recovered/Not Resolved]
